FAERS Safety Report 5065548-8 (Version None)
Quarter: 2006Q3

REPORT INFORMATION
  Report Type: 
  Country: None (occurrence: None)
  Receive Date: 20060731
  Receipt Date: 20060725
  Transmission Date: 20061208
  Serious: Yes (Hospitalization)
  Sender: FDA-Public Use
  Company Number: FR-GLAXOSMITHKLINE-B0432368A

PATIENT
  Age: 48 Year
  Sex: Male

DRUGS (1)
  1. IMIJECT [Suspect]
     Indication: HEADACHE
     Dosage: 6MG FOUR TIMES PER DAY
     Route: 058
     Dates: end: 20060319

REACTIONS (2)
  - DRUG DEPENDENCE [None]
  - OVERDOSE [None]
